FAERS Safety Report 8057191-3 (Version None)
Quarter: 2012Q1

REPORT INFORMATION
  Report Type: 
  Country: None (occurrence: None)
  Receive Date: 20120119
  Receipt Date: 20120111
  Transmission Date: 20120608
  Serious: Yes (Other)
  Sender: FDA-Public Use
  Company Number: PHHY2011FR101914

PATIENT
  Sex: Male
  Weight: 129 kg

DRUGS (16)
  1. BRICANYL [Concomitant]
     Dosage: UNK UKN, UNK
  2. ONBREZ [Suspect]
     Indication: CHRONIC OBSTRUCTIVE PULMONARY DISEASE
     Dosage: 150 UG, QD
     Dates: start: 20111109, end: 20111112
  3. SYMBICORT [Concomitant]
     Indication: CORONARY ARTERY DISEASE
     Dosage: 2 DF, UNK
  4. ALLOPURINOL [Concomitant]
     Indication: GOUT
     Dosage: 1 DF, QD
  5. VALSARTAN  AND HYDROCHLOROTHIAZIDE [Concomitant]
     Indication: HYPERTENSION
     Dosage: 1 DF, QD
  6. PREDNISONE TAB [Concomitant]
     Indication: ASTHMA
     Dosage: 2 DF, UNK
  7. MEBEVERINE [Concomitant]
     Dosage: 3 DF, UNK
  8. FENOFIBRATE [Concomitant]
     Dosage: 1 DF, QD
  9. DETURGYLONE [Concomitant]
     Dosage: 5 TIMES DAILY
  10. ISOPTIN [Concomitant]
     Dosage: 3 DF, UNK
  11. ONBREZ [Suspect]
     Dosage: UNK UKN, UNK
  12. LYRICA [Suspect]
     Indication: NEUROPATHY PERIPHERAL
     Dosage: 50 MG, UNK
     Route: 048
     Dates: start: 20111109, end: 20111112
  13. GLUCOPHAGE [Concomitant]
     Dosage: 1000 MG, UNK
  14. OMEPRAZOLE [Concomitant]
     Indication: GASTRITIS
     Dosage: 1 DF, QD
     Route: 048
  15. NOVOLOG [Concomitant]
     Indication: DIABETES MELLITUS
     Dosage: 40 IU, UNK
  16. CREON [Concomitant]
     Dosage: 4 DF, UNK

REACTIONS (5)
  - SKIN LESION [None]
  - PRURITUS [None]
  - ERYTHEMA [None]
  - ANGIOEDEMA [None]
  - SKIN EXFOLIATION [None]
